FAERS Safety Report 8583042-4 (Version None)
Quarter: 2012Q3

REPORT INFORMATION
  Report Type: 
  Country: None (occurrence: None)
  Receive Date: 20120727
  Receipt Date: 20120716
  Transmission Date: 20120928
  Serious: Yes (Death, Other)
  Sender: FDA-Public Use
  Company Number: 011511

PATIENT

DRUGS (6)
  1. CYCLOSPORI A (CICLOSPORIN) [Concomitant]
  2. BUSULFEX [Suspect]
  3. MYCOPHENOLATE MOFETIL [Concomitant]
  4. CYTARABINE [Concomitant]
  5. CYCLOPHOSPHAMIDE [Concomitant]
  6. ATG (ANTILYMPHOCYTE IMMUNOGLOBLUIN (HORSE)) [Concomitant]

REACTIONS (2)
  - GASTROINTESTINAL HAEMORRHAGE [None]
  - LEUKAEMIA RECURRENT [None]
